FAERS Safety Report 7297332-9 (Version None)
Quarter: 2011Q1

REPORT INFORMATION
  Report Type: 
  Country: None (occurrence: None)
  Receive Date: 20110216
  Receipt Date: 20110210
  Transmission Date: 20110831
  Serious: Yes (Death)
  Sender: FDA-Public Use
  Company Number: US-PFIZER INC-2011030866

PATIENT
  Sex: Female
  Weight: 56.463 kg

DRUGS (13)
  1. GABAPENTIN [Concomitant]
     Dosage: 100 MG, 2X/DAY
  2. LASIX [Concomitant]
     Dosage: 80 MG, 1X/DAY
  3. ALLEGRA [Concomitant]
     Dosage: 180 MG, 1X/DAY
  4. ENALAPRIL [Concomitant]
     Indication: HYPERTENSION
     Dosage: 2.5 MG, 2X/DAY
  5. POTASSIUM [Concomitant]
     Dosage: 10 MG, UNK
  6. ROPINIROLE [Concomitant]
     Dosage: 0.25 MG, 1X/DAY
  7. ZOCOR [Concomitant]
     Indication: BLOOD CHOLESTEROL INCREASED
     Dosage: 40 MG, 1X/DAY
  8. SOTALOL [Concomitant]
     Dosage: 120 MG, 3X/DAY
  9. VITAMIN D [Concomitant]
     Dosage: 50000 UNITS, 1X/WEEK
  10. TIAZAC [Concomitant]
     Indication: HYPERTENSION
     Dosage: 350 MG, 1X/DAY
  11. REVATIO [Suspect]
     Indication: PULMONARY HYPERTENSION
     Dosage: 20 MG, 3X/DAY
     Route: 048
     Dates: start: 20100619
  12. NEBIVOLOL [Concomitant]
     Indication: HYPERTENSION
     Dosage: 5 MG, 1X/DAY
  13. DIAMOX [Concomitant]
     Dosage: 250 MG, 1X/DAY

REACTIONS (1)
  - DEATH [None]
